FAERS Safety Report 13576568 (Version 3)
Quarter: 2018Q2

REPORT INFORMATION
  Report Type: Spontaneous
  Country: US (occurrence: US)
  Receive Date: 20170524
  Receipt Date: 20180618
  Transmission Date: 20180711
  Serious: Yes (Other)
  Sender: FDA-Public Use
  Company Number: US-BRISTOL-MYERS SQUIBB COMPANY-BMS-2017-044671

PATIENT
  Sex: Female
  Weight: 225 kg

DRUGS (1)
  1. YERVOY [Suspect]
     Active Substance: IPILIMUMAB
     Indication: MALIGNANT MELANOMA
     Dosage: UNK, Q3WK
     Route: 065
     Dates: start: 20170315

REACTIONS (5)
  - Malignant neoplasm progression [Unknown]
  - Lymphadenopathy [Unknown]
  - Swelling face [Unknown]
  - Conjunctivitis [Unknown]
  - Rash [Unknown]
